FAERS Safety Report 18476252 (Version 1)
Quarter: 2020Q4

REPORT INFORMATION
  Report Type: Report from Study
  Country: PL (occurrence: PL)
  Receive Date: 20201106
  Receipt Date: 20201106
  Transmission Date: 20210114
  Serious: Yes (Life-Threatening, Hospitalization)
  Sender: FDA-Public Use
  Company Number: PL-TAIHO ONCOLOGY  INC-IM-2020-00870

PATIENT
  Age: 72 Year
  Sex: Female
  Weight: 68 kg

DRUGS (20)
  1. METFORMIN HYDROCHLORIDE. [Concomitant]
     Active Substance: METFORMIN HYDROCHLORIDE
     Indication: DIABETES MELLITUS
     Dosage: 850 MG, BID
     Route: 048
     Dates: start: 2015
  2. NEBIVOLOL. [Concomitant]
     Active Substance: NEBIVOLOL
     Indication: HYPERTENSION
  3. PRESTARIUM CO [Concomitant]
     Indication: CARDIAC FAILURE
     Dosage: 10 MG, QD
     Route: 048
     Dates: start: 20200804
  4. PRESTARIUM CO [Concomitant]
     Indication: HYPERTENSION
  5. TORASEMIDE [Concomitant]
     Active Substance: TORSEMIDE
     Indication: HYPERTENSION
     Dosage: 5 MG, QD
     Route: 048
     Dates: start: 20200804
  6. LONSURF [Suspect]
     Active Substance: TIPIRACIL HYDROCHLORIDE\TRIFLURIDINE
     Indication: ADENOCARCINOMA OF COLON
     Dosage: 60 MG (35MG/M2) BID, ON DAYS 1-5 AND 8-12 OF EACH 28-DAY CYCLE
     Route: 048
     Dates: start: 20200701, end: 20200809
  7. SPIRONOL [Concomitant]
     Active Substance: SPIRONOLACTONE
     Indication: CARDIAC FAILURE
     Dosage: 25 MG, QD
     Route: 048
     Dates: start: 20200804
  8. LONSURF [Suspect]
     Active Substance: TIPIRACIL HYDROCHLORIDE\TRIFLURIDINE
     Dosage: 60 MG (35MG/M2) BID, ON DAYS 1-5 AND 8-12 OF EACH 28-DAY CYCLE
     Route: 048
     Dates: start: 20200901, end: 20201017
  9. BEVACIZUMAB. [Suspect]
     Active Substance: BEVACIZUMAB
     Indication: ADENOCARCINOMA OF COLON
     Dosage: 355 MG (5MG/KG), ON DAY 1 AND 15 OF EACH 28-DAY CYCLE
     Route: 042
     Dates: start: 20200701, end: 20200812
  10. METOCLOPRAMIDE HYDROCHLORIDE. [Concomitant]
     Active Substance: METOCLOPRAMIDE HYDROCHLORIDE
     Indication: NAUSEA
  11. NEBIVOLOL. [Concomitant]
     Active Substance: NEBIVOLOL
     Indication: CARDIAC FAILURE
     Dosage: 5 MG, QD
     Route: 048
     Dates: start: 2015
  12. TORASEMIDE [Concomitant]
     Active Substance: TORSEMIDE
     Indication: CARDIAC FAILURE
  13. METOCLOPRAMIDE HYDROCHLORIDE. [Concomitant]
     Active Substance: METOCLOPRAMIDE HYDROCHLORIDE
     Indication: VOMITING
     Dosage: 10 MG, BID
     Route: 048
     Dates: start: 20200630
  14. TARDYFERON [Concomitant]
     Active Substance: FERROUS SULFATE
     Indication: ANAEMIA
     Dosage: 80 MG, BID
     Route: 048
     Dates: start: 20200715
  15. SPIRONOL [Concomitant]
     Active Substance: SPIRONOLACTONE
     Indication: HYPERTENSION
  16. OPIPRAMOL [Concomitant]
     Active Substance: OPIPRAMOL
     Indication: ANXIETY DISORDER
     Dosage: 50 MG, QD
     Route: 048
     Dates: start: 202006
  17. BEVACIZUMAB. [Suspect]
     Active Substance: BEVACIZUMAB
     Dosage: 350 MG (5MG/KG), ON DAY 1 AND 15 OF EACH 28-DAY CYCLE
     Route: 042
     Dates: start: 20200901, end: 20201019
  18. INDAPAMIDE. [Concomitant]
     Active Substance: INDAPAMIDE
     Indication: CARDIAC FAILURE
     Dosage: 1.5 MG, QD
     Route: 048
     Dates: start: 20200804
  19. PARACETAMOL [Concomitant]
     Active Substance: ACETAMINOPHEN
     Indication: PYREXIA
     Dosage: 1 G, PRN
     Route: 048
     Dates: start: 20200630
  20. INDAPAMIDE. [Concomitant]
     Active Substance: INDAPAMIDE
     Indication: HYPERTENSION

REACTIONS (1)
  - Ischaemic stroke [Recovering/Resolving]

NARRATIVE: CASE EVENT DATE: 20201103
